FAERS Safety Report 9730911 (Version 3)
Quarter: 2014Q1

REPORT INFORMATION
  Report Type: Spontaneous
  Country: US (occurrence: US)
  Receive Date: 20131205
  Receipt Date: 20140205
  Transmission Date: 20141002
  Serious: No
  Sender: FDA-Public Use
  Company Number: US-ROXANE LABORATORIES, INC.-2013-RO-01888RO

PATIENT
  Sex: Male
  Weight: 120 kg

DRUGS (2)
  1. CLOTRIMAZOLE [Suspect]
     Indication: ORAL CANDIDIASIS
     Dosage: 20 MG
     Route: 048
     Dates: start: 2013, end: 2013
  2. CLOTRIMAZOLE [Suspect]
     Indication: FUNGAL SKIN INFECTION

REACTIONS (2)
  - Drug ineffective [Unknown]
  - Product quality issue [Unknown]
